FAERS Safety Report 24569577 (Version 1)
Quarter: 2024Q4

REPORT INFORMATION
  Report Type: Spontaneous
  Country: JP (occurrence: JP)
  Receive Date: 20241031
  Receipt Date: 20241031
  Transmission Date: 20250115
  Serious: Yes (Other)
  Sender: MERCK
  Company Number: JP-MSD-M2024-43358

PATIENT
  Sex: Female

DRUGS (1)
  1. KEYTRUDA [Suspect]
     Active Substance: PEMBROLIZUMAB
     Indication: Renal cancer stage III
     Dosage: 200 MILLIGRAM, Q3W
     Route: 041

REACTIONS (4)
  - Immobile [Unknown]
  - Rheumatic disorder [Unknown]
  - Bedridden [Not Recovered/Not Resolved]
  - Pain [Unknown]
